FAERS Safety Report 13649002 (Version 1)
Quarter: 2017Q2

REPORT INFORMATION
  Report Type: Spontaneous
  Country: IN (occurrence: IN)
  Receive Date: 20170613
  Receipt Date: 20170613
  Transmission Date: 20170830
  Serious: Yes (Other)
  Sender: FDA-Public Use
  Company Number: IN-MYLANLABS-2017M1035295

PATIENT

DRUGS (4)
  1. AZATHIOPRINE. [Concomitant]
     Active Substance: AZATHIOPRINE
     Indication: PRODUCT USED FOR UNKNOWN INDICATION
     Route: 065
  2. MESALAZINE [Concomitant]
     Active Substance: MESALAMINE
     Indication: PRODUCT USED FOR UNKNOWN INDICATION
     Route: 065
  3. ESTRADIOL. [Suspect]
     Active Substance: ESTRADIOL
     Indication: COLITIS ULCERATIVE
     Route: 065
  4. NORETHISTERONE [Suspect]
     Active Substance: NORETHINDRONE
     Indication: COLITIS ULCERATIVE
     Route: 065

REACTIONS (4)
  - Loss of libido [Unknown]
  - Cataract [Unknown]
  - Gynaecomastia [Unknown]
  - Diabetes mellitus inadequate control [Unknown]
